FAERS Safety Report 9389070 (Version 1)
Quarter: 2013Q3

REPORT INFORMATION
  Report Type: Report from Study
  Country: VN (occurrence: VN)
  Receive Date: 20130708
  Receipt Date: 20130708
  Transmission Date: 20140515
  Serious: Yes (Other)
  Sender: FDA-Public Use
  Company Number: PHHY2012VN069718

PATIENT
  Sex: Male

DRUGS (3)
  1. GLIVEC [Suspect]
     Indication: GASTROINTESTINAL STROMAL TUMOUR
     Dosage: 400 MG, QD
     Route: 048
  2. GLIVEC [Suspect]
     Dosage: 600 MG, QD
     Route: 048
  3. GLIVEC [Suspect]
     Dosage: 800 MG, QD

REACTIONS (6)
  - Cachexia [Unknown]
  - Gastrointestinal stromal tumour [Not Recovered/Not Resolved]
  - Malignant neoplasm progression [Not Recovered/Not Resolved]
  - Neoplasm recurrence [Unknown]
  - Metastases to liver [Unknown]
  - Drug intolerance [Unknown]
